FAERS Safety Report 13243586 (Version 2)
Quarter: 2017Q1

REPORT INFORMATION
  Report Type: Spontaneous
  Country: US (occurrence: US)
  Receive Date: 20170216
  Receipt Date: 20170315
  Transmission Date: 20170428
  Serious: Yes (Hospitalization, Other)
  Sender: FDA-Public Use
  Company Number: US-SAOL THERAPEUTICS-2017SAO00296

PATIENT
  Sex: Female

DRUGS (14)
  1. VITAMIN B12 [Concomitant]
     Active Substance: CYANOCOBALAMIN
  2. LIORESAL [Suspect]
     Active Substance: BACLOFEN
     Dosage: 600 ?G, \DAY
     Route: 037
     Dates: start: 20110106
  3. PROZAC [Concomitant]
     Active Substance: FLUOXETINE HYDROCHLORIDE
  4. LISINOPRIL. [Concomitant]
     Active Substance: LISINOPRIL
  5. LASIX [Concomitant]
     Active Substance: FUROSEMIDE
  6. SPIRONOLACTONE. [Concomitant]
     Active Substance: SPIRONOLACTONE
  7. LIORESAL [Suspect]
     Active Substance: BACLOFEN
     Dosage: 12.4 ?G, \DAY
     Route: 037
     Dates: start: 20161010
  8. SYNTHROID [Concomitant]
     Active Substance: LEVOTHYROXINE SODIUM
  9. METFORMIN [Concomitant]
     Active Substance: METFORMIN HYDROCHLORIDE
  10. METOLAZONE. [Concomitant]
     Active Substance: METOLAZONE
  11. SIMVASTATIN. [Concomitant]
     Active Substance: SIMVASTATIN
  12. PROTONIX [Concomitant]
     Active Substance: PANTOPRAZOLE SODIUM
  13. POTASSIUM CHLORIDE. [Concomitant]
     Active Substance: POTASSIUM CHLORIDE
  14. ATIVAN [Concomitant]
     Active Substance: LORAZEPAM

REACTIONS (9)
  - Hallucination [Recovered/Resolved]
  - Withdrawal syndrome [Recovered/Resolved]
  - Escherichia infection [Recovered/Resolved]
  - Device failure [Unknown]
  - Sepsis [Recovered/Resolved]
  - Cellulitis [Recovered/Resolved]
  - Klebsiella infection [Recovered/Resolved]
  - Urinary tract infection [Recovered/Resolved]
  - Confusional state [Recovered/Resolved]
